FAERS Safety Report 4751642-5 (Version None)
Quarter: 2005Q3

REPORT INFORMATION
  Report Type: 
  Country: None (occurrence: None)
  Receive Date: 20050823
  Receipt Date: 20050823
  Transmission Date: 20060218
  Serious: Yes (Death)
  Sender: FDA-Public Use
  Company Number: None

PATIENT
  Age: 35 Year
  Sex: Female
  Weight: 116.1208 kg

DRUGS (1)
  1. FENTANYL [Suspect]

REACTIONS (1)
  - ACCIDENTAL OVERDOSE [None]
